FAERS Safety Report 5042192-X (Version None)
Quarter: 2006Q2

REPORT INFORMATION
  Report Type: 
  Country: None (occurrence: None)
  Receive Date: 20060601
  Receipt Date: 20060329
  Transmission Date: 20061013
  Serious: No
  Sender: FDA-Public Use
  Company Number: 2006PV011159

PATIENT
  Age: 67 Year
  Sex: Female
  Weight: 102.5129 kg

DRUGS (7)
  1. BYETTA [Suspect]
     Indication: DIABETES MELLITUS NON-INSULIN-DEPENDENT
     Dosage: SEE IMAGE
     Route: 058
     Dates: start: 20060227, end: 20060328
  2. BYETTA [Suspect]
     Indication: DIABETES MELLITUS NON-INSULIN-DEPENDENT
     Dosage: SEE IMAGE
     Route: 058
     Dates: start: 20060329
  3. HUMALOG [Concomitant]
  4. GLUCOPHAGE [Concomitant]
  5. DIOVAN [Concomitant]
  6. HYDROCHLOROTHIAZIDE [Concomitant]
  7. LIPITOR [Concomitant]

REACTIONS (6)
  - ASTHENIA [None]
  - BLOOD GLUCOSE INCREASED [None]
  - BLOOD PRESSURE INCREASED [None]
  - DIZZINESS [None]
  - FATIGUE [None]
  - WEIGHT DECREASED [None]
